FAERS Safety Report 11656153 (Version 2)
Quarter: 2015Q4

REPORT INFORMATION
  Report Type: Spontaneous
  Country: US (occurrence: US)
  Receive Date: 20151023
  Receipt Date: 20151027
  Transmission Date: 20160304
  Serious: Yes (Hospitalization)
  Sender: FDA-Public Use
  Company Number: US-TEVA-602239USA

PATIENT
  Age: 66 Year
  Sex: Male
  Weight: 77.63 kg

DRUGS (11)
  1. OXYCODONE [Concomitant]
     Active Substance: OXYCODONE
     Indication: PAIN
     Dosage: AS NEEDED
     Dates: start: 201501
  2. MIRALAX [Concomitant]
     Active Substance: POLYETHYLENE GLYCOL 3350
  3. VITAMIN D [Concomitant]
     Active Substance: CHOLECALCIFEROL
  4. WARFARIN [Suspect]
     Active Substance: WARFARIN
     Route: 048
  5. CALTRATE [Concomitant]
     Active Substance: CALCIUM CARBONATE
     Route: 048
     Dates: start: 201501
  6. SUTENT [Suspect]
     Active Substance: SUNITINIB MALATE
     Indication: RENAL CANCER
     Dosage: 50 MILLIGRAM DAILY; 37.5 MG 2 WEEKS ON/1 WEEK OFF
     Dates: start: 20150824
  7. PROTONIX [Concomitant]
     Active Substance: PANTOPRAZOLE SODIUM
  8. OXYCODONE [Concomitant]
     Active Substance: OXYCODONE
     Dates: start: 201501
  9. ATIVAN [Concomitant]
     Active Substance: LORAZEPAM
  10. LASIX [Concomitant]
     Active Substance: FUROSEMIDE
  11. MELATONIN [Concomitant]
     Active Substance: MELATONIN
     Indication: INSOMNIA
     Dosage: 10 MILLIGRAM DAILY;
     Dates: start: 201404

REACTIONS (7)
  - Dehydration [Recovered/Resolved]
  - Drug ineffective [Unknown]
  - Feeling abnormal [Recovered/Resolved]
  - Fatigue [Not Recovered/Not Resolved]
  - Depressed level of consciousness [Recovered/Resolved]
  - International normalised ratio decreased [Unknown]
  - Urinary tract infection [Recovered/Resolved]

NARRATIVE: CASE EVENT DATE: 20150909
